FAERS Safety Report 5192017-7 (Version None)
Quarter: 2006Q4

REPORT INFORMATION
  Report Type: 
  Country: None (occurrence: None)
  Receive Date: 20061220
  Receipt Date: 20061220
  Transmission Date: 20070319
  Serious: Yes (Hospitalization)
  Sender: FDA-Public Use
  Company Number: None

PATIENT
  Age: 61 Year
  Sex: Female

DRUGS (13)
  1. ASPIRIN [Suspect]
     Indication: CARDIOVASCULAR DISORDER
     Dosage: 81MG PO DAILY CHRONIC
     Route: 048
  2. CLOPIDOGREL [Suspect]
     Indication: CARDIOVASCULAR DISORDER
     Dosage: 75MG PO DAILY  CHRONIC
     Route: 048
  3. INSULIN [Concomitant]
  4. METOPROLOL SUCCINATE [Concomitant]
  5. REGLAN [Concomitant]
  6. LASIX [Concomitant]
  7. INDOCIN [Concomitant]
  8. ASPIRIN [Concomitant]
  9. VIT B12 [Concomitant]
  10. OXYCODONE HCL [Concomitant]
  11. HYDROPHEN [Concomitant]
  12. ACTOS [Concomitant]
  13. COZAAR [Concomitant]

REACTIONS (4)
  - ANAEMIA [None]
  - DIVERTICULUM INTESTINAL HAEMORRHAGIC [None]
  - LOWER GASTROINTESTINAL HAEMORRHAGE [None]
  - RECTAL HAEMORRHAGE [None]
